FAERS Safety Report 6103874-1 (Version None)
Quarter: 2009Q1

REPORT INFORMATION
  Report Type: 
  Country: None (occurrence: None)
  Receive Date: 20090227
  Receipt Date: 20080804
  Transmission Date: 20090719
  Serious: Yes (Hospitalization)
  Sender: FDA-Public Use
  Company Number: 310011M08FRA

PATIENT
  Age: 42 Year
  Sex: Female

DRUGS (4)
  1. GONAL-F [Suspect]
     Indication: INFERTILITY FEMALE
     Dates: start: 19970101
  2. CLOMID [Suspect]
     Indication: INFERTILITY FEMALE
  3. HUMEGON [Suspect]
     Indication: INFERTILITY FEMALE
     Dates: start: 19970101
  4. INTERFERON ALPHA (INTERFERON ALFA) [Concomitant]

REACTIONS (1)
  - BREAST CANCER FEMALE [None]
